FAERS Safety Report 4608811-4 (Version None)
Quarter: 2005Q1

REPORT INFORMATION
  Report Type: 
  Country: None (occurrence: None)
  Receive Date: 20050311
  Receipt Date: 20050228
  Transmission Date: 20050727
  Serious: Yes (Hospitalization)
  Sender: FDA-Public Use
  Company Number: 430004M05FRA

PATIENT
  Age: 80 Year
  Sex: Male

DRUGS (8)
  1. NOVANTRONE [Suspect]
     Indication: PROSTATE CANCER
     Dosage: SEE IMAGE
     Route: 042
     Dates: start: 20040901, end: 20041201
  2. NOVANTRONE [Suspect]
     Indication: PROSTATE CANCER
     Dosage: SEE IMAGE
     Route: 042
     Dates: start: 20050110, end: 20050110
  3. ALLOPURINOL [Concomitant]
  4. FUROSEMIDE [Concomitant]
  5. FENTANYL [Concomitant]
  6. DIGOXIN [Concomitant]
  7. POTASSIUM CHLORIDE [Concomitant]
  8. FERROUS SULFATE TAB [Concomitant]

REACTIONS (9)
  - ABDOMINAL PAIN UPPER [None]
  - ASTHENIA [None]
  - BONE MARROW DEPRESSION [None]
  - CHEST PAIN [None]
  - COUGH [None]
  - EPISTAXIS [None]
  - NEOPLASM PROGRESSION [None]
  - OEDEMA PERIPHERAL [None]
  - ROULEAUX FORMATION [None]
